FAERS Safety Report 7900459-9 (Version None)
Quarter: 2011Q4

REPORT INFORMATION
  Report Type: 
  Country: None (occurrence: None)
  Receive Date: 20111108
  Receipt Date: 20111028
  Transmission Date: 20120403
  Serious: Yes (Other)
  Sender: FDA-Public Use
  Company Number: US-JNJFOC-20110900427

PATIENT
  Sex: Female
  Weight: 90.72 kg

DRUGS (25)
  1. LEVAQUIN [Suspect]
     Indication: PRODUCT USED FOR UNKNOWN INDICATION
     Dosage: 1 TABLET DAILY, FOR 4 DAYS
     Route: 048
     Dates: start: 20060818
  2. WELLBUTRIN [Concomitant]
     Route: 048
     Dates: start: 20060401
  3. WELLBUTRIN [Concomitant]
     Route: 048
     Dates: start: 20060827
  4. METFORMIN HCL [Concomitant]
     Route: 048
     Dates: start: 20060401
  5. WELLBUTRIN [Concomitant]
     Indication: PRODUCT USED FOR UNKNOWN INDICATION
     Route: 048
     Dates: start: 20061015
  6. LEVAQUIN [Suspect]
     Dosage: 1 TABLET DAILY, FOR 7 DAYS
     Route: 048
     Dates: start: 20060303
  7. PAROXETINE HCL [Concomitant]
     Indication: PRODUCT USED FOR UNKNOWN INDICATION
     Route: 048
     Dates: start: 20080213
  8. LEVOTHYROXINE SODIUM [Concomitant]
     Indication: PRODUCT USED FOR UNKNOWN INDICATION
     Route: 048
     Dates: start: 20080303
  9. OXYCODONE/ACETAMINOPHEN [Concomitant]
     Route: 048
     Dates: start: 20060303
  10. CLONAZEPAM [Concomitant]
     Indication: PRODUCT USED FOR UNKNOWN INDICATION
     Route: 048
     Dates: start: 20070913
  11. METFORMIN HCL [Concomitant]
     Indication: PRODUCT USED FOR UNKNOWN INDICATION
     Route: 048
     Dates: start: 20061002
  12. LEVOTHYROXINE SODIUM [Concomitant]
     Route: 048
     Dates: start: 20060912
  13. CEPHALEXIN [Concomitant]
     Indication: PRODUCT USED FOR UNKNOWN INDICATION
     Dosage: 1 CAPSULE, FOR 3 DAYS
     Route: 048
     Dates: start: 20060413
  14. PAROXETINE HCL [Concomitant]
     Route: 048
     Dates: start: 20071029
  15. CEPHALEXIN [Concomitant]
     Dosage: 1 CAPSULE, FOR 10 DAYS
     Route: 048
     Dates: start: 20071120
  16. LEVAQUIN [Suspect]
     Route: 048
     Dates: start: 19990101
  17. LEVAQUIN [Suspect]
     Indication: PREMEDICATION
     Route: 042
  18. LEVOTHYROXINE SODIUM [Concomitant]
     Route: 048
     Dates: start: 20060428
  19. PAROXETINE HCL [Concomitant]
     Route: 048
     Dates: start: 20061006
  20. ATENOLOL [Concomitant]
     Indication: PRODUCT USED FOR UNKNOWN INDICATION
     Route: 048
     Dates: start: 20060912
  21. ACETAMINOPHEN W/ CODEINE [Concomitant]
     Indication: PAIN
     Route: 048
     Dates: start: 20071120
  22. PAROXETINE HCL [Concomitant]
     Route: 048
     Dates: start: 20080101
  23. DIOVAN [Concomitant]
     Indication: PRODUCT USED FOR UNKNOWN INDICATION
     Route: 048
     Dates: start: 20060912
  24. OXYCODONE/ACETAMINOPHEN [Concomitant]
     Indication: PAIN
     Route: 048
     Dates: start: 20060413
  25. OFLOXACIN [Concomitant]
     Indication: EYE DISORDER
     Route: 047
     Dates: start: 20080419

REACTIONS (6)
  - PAIN IN EXTREMITY [None]
  - OSTEOARTHRITIS [None]
  - TENDON RUPTURE [None]
  - MENISCUS LESION [None]
  - ARTHRALGIA [None]
  - LIGAMENT DISORDER [None]
